FAERS Safety Report 5735590-X (Version None)
Quarter: 2008Q2

REPORT INFORMATION
  Report Type: 
  Country: None (occurrence: None)
  Receive Date: 20080508
  Receipt Date: 20070712
  Transmission Date: 20081010
  Serious: Yes (Other)
  Sender: FDA-Public Use
  Company Number: 2007RR-08498

PATIENT
  Age: 15 Year
  Sex: Male
  Weight: 69 kg

DRUGS (11)
  1. MIDAZOLAM HYDROCHLORIDE [Suspect]
     Dosage: 2.5 MG
  2. PARACETAMOL       (ACETAMINOPHEN/PARACETAMOL) [Concomitant]
  3. FENTANYL [Concomitant]
  4. PROPOFOL [Concomitant]
  5. PARECOXIB (PARECOXIB) [Concomitant]
  6. OXYGEN (OXYGEN) [Concomitant]
  7. NITROUS OXIDE W/ OXYGEN [Concomitant]
  8. SEVOFLURANE [Concomitant]
  9. MORPHINE [Concomitant]
  10. ASPIRIN [Concomitant]
  11. HEPARIN [Concomitant]

REACTIONS (6)
  - ANAESTHETIC COMPLICATION [None]
  - CEREBROVASCULAR DISORDER [None]
  - HEMIPARESIS [None]
  - MIGRAINE WITH AURA [None]
  - SENSORY LOSS [None]
  - STRESS [None]
